FAERS Safety Report 9874387 (Version 3)
Quarter: 2014Q1

REPORT INFORMATION
  Report Type: Report from Study
  Country: CA (occurrence: CA)
  Receive Date: 20140206
  Receipt Date: 20140228
  Transmission Date: 20141002
  Serious: Yes (Other)
  Sender: FDA-Public Use
  Company Number: CA-ROCHE-1228308

PATIENT
  Sex: Male
  Weight: 65 kg

DRUGS (13)
  1. RITUXAN [Suspect]
     Indication: RHEUMATOID ARTHRITIS
     Route: 042
     Dates: start: 20071022
  2. DIPHENHYDRAMINE HCL [Concomitant]
     Indication: PREMEDICATION
     Route: 048
     Dates: start: 20090821
  3. ACETAMINOPHEN [Concomitant]
     Indication: PREMEDICATION
     Route: 048
     Dates: start: 20090821
  4. METHYLPREDNISOLONE [Concomitant]
     Indication: PREMEDICATION
     Route: 042
     Dates: start: 20090821
  5. MAVIK [Concomitant]
  6. LIPITOR [Concomitant]
  7. NOVO-RISEDRONATE [Concomitant]
  8. BIOCAL [Concomitant]
     Dosage: BIOCAL D FORTE
     Route: 065
  9. SALAZOPYRIN [Concomitant]
  10. BABY ASPIRIN [Concomitant]
  11. PREDNISONE [Concomitant]
  12. DESMOPRESSIN [Concomitant]
     Dosage: NOVO-DESMOPRESSIN
     Route: 065
  13. CARVEDILOL [Concomitant]

REACTIONS (2)
  - Drug ineffective [Unknown]
  - Arthropathy [Unknown]
